FAERS Safety Report 18658006 (Version 1)
Quarter: 2020Q4

REPORT INFORMATION
  Report Type: Report from Study
  Country: US (occurrence: US)
  Receive Date: 20201224
  Receipt Date: 20201224
  Transmission Date: 20210114
  Serious: Yes (Other)
  Sender: FDA-Public Use
  Company Number: US-TEVA-2020-US-1852920

PATIENT
  Age: 59 Year
  Sex: Female

DRUGS (1)
  1. CINQAIR [Suspect]
     Active Substance: RESLIZUMAB
     Dosage: NEXT INFUSION 08-DEC-2020
     Route: 042
     Dates: start: 20201110

REACTIONS (6)
  - Autoimmune disorder [Unknown]
  - Fluid retention [Unknown]
  - Injection site bruising [Not Recovered/Not Resolved]
  - Diabetes insipidus [Unknown]
  - Herpes zoster [Unknown]
  - Vein rupture [Unknown]

NARRATIVE: CASE EVENT DATE: 20201110
